FAERS Safety Report 25168453 (Version 1)
Quarter: 2025Q2

REPORT INFORMATION
  Report Type: Spontaneous
  Country: US (occurrence: US)
  Receive Date: 20250407
  Receipt Date: 20250407
  Transmission Date: 20250717
  Serious: Yes (Hospitalization, Other)
  Sender: DR REDDYS
  Company Number: US-DRL-USA-USA/2025/04/005083

PATIENT
  Age: 79 Year
  Sex: Female

DRUGS (3)
  1. DILTIAZEM [Suspect]
     Active Substance: DILTIAZEM
     Indication: Left ventricle outflow tract obstruction
  2. METOPROLOL [Suspect]
     Active Substance: METOPROLOL
     Indication: Left ventricle outflow tract obstruction
  3. DISOPYRAMIDE [Suspect]
     Active Substance: DISOPYRAMIDE
     Indication: Left ventricle outflow tract obstruction

REACTIONS (1)
  - Drug ineffective for unapproved indication [Unknown]
